FAERS Safety Report 10613299 (Version 2)
Quarter: 2014Q4

REPORT INFORMATION
  Report Type: Spontaneous
  Country: US (occurrence: US)
  Receive Date: 20141128
  Receipt Date: 20141203
  Transmission Date: 20150529
  Serious: Yes (Death, Hospitalization, Other)
  Sender: FDA-Public Use
  Company Number: US-009507513-1411USA009271

PATIENT
  Age: 72 Year
  Sex: Male

DRUGS (6)
  1. TERAZOSIN HYDROCHLORIDE. [Concomitant]
     Active Substance: TERAZOSIN HYDROCHLORIDE
     Dosage: UNK
  2. INTRON A [Suspect]
     Active Substance: INTERFERON ALFA-2B
     Indication: THROMBOCYTOSIS
  3. ASPIRIN. [Concomitant]
     Active Substance: ASPIRIN
     Dosage: BABY ASPIRIN
  4. INTRON A [Suspect]
     Active Substance: INTERFERON ALFA-2B
     Indication: BONE MARROW DISORDER
     Dosage: 0.5 ML, TWICE A WEEK
     Dates: start: 200408
  5. METOPROLOL [Concomitant]
     Active Substance: METOPROLOL
     Dosage: UNK
  6. ANAGRELIDE HYDROCHLORIDE. [Concomitant]
     Active Substance: ANAGRELIDE HYDROCHLORIDE
     Dosage: UNK

REACTIONS (3)
  - Haemorrhagic stroke [Fatal]
  - Endotracheal intubation [Unknown]
  - Fall [Unknown]

NARRATIVE: CASE EVENT DATE: 201411
